FAERS Safety Report 7946593-9 (Version None)
Quarter: 2011Q4

REPORT INFORMATION
  Report Type: 
  Country: None (occurrence: None)
  Receive Date: 20111129
  Receipt Date: 20111118
  Transmission Date: 20120403
  Serious: Yes (Other)
  Sender: FDA-Public Use
  Company Number: DE-JNJFOC-20110807517

PATIENT
  Age: 67 Year
  Sex: Female

DRUGS (8)
  1. METHOTREXATE [Concomitant]
     Route: 048
     Dates: start: 20040601
  2. PREDNISOLONE [Concomitant]
  3. FOLIC ACID [Concomitant]
  4. OMEPRAZOLE [Concomitant]
  5. INFLIXIMAB, RECOMBINANT [Suspect]
     Indication: RHEUMATOID ARTHRITIS
     Route: 042
     Dates: start: 20080101, end: 20100126
  6. INFLIXIMAB, RECOMBINANT [Suspect]
     Route: 042
     Dates: start: 20040701, end: 20071201
  7. METHOTREXATE [Concomitant]
     Route: 048
  8. METHOTREXATE [Concomitant]
     Route: 048

REACTIONS (1)
  - BREAST CANCER [None]
